FAERS Safety Report 6258911-0 (Version None)
Quarter: 2009Q3

REPORT INFORMATION
  Report Type: 
  Country: None (occurrence: None)
  Receive Date: 20090702
  Receipt Date: 20090629
  Transmission Date: 20100115
  Serious: Yes (Death)
  Sender: FDA-Public Use
  Company Number: 2009SP014162

PATIENT
  Age: 36 Year
  Sex: Male

DRUGS (1)
  1. TEMODAR [Suspect]
     Indication: BRAIN NEOPLASM
     Dosage: ; PO
     Route: 048

REACTIONS (2)
  - PNEUMONIA [None]
  - PULMONARY EMBOLISM [None]
